FAERS Safety Report 6968439-8 (Version None)
Quarter: 2010Q3

REPORT INFORMATION
  Report Type: 
  Country: None (occurrence: None)
  Receive Date: 20100907
  Receipt Date: 20100825
  Transmission Date: 20110219
  Serious: Yes (Other)
  Sender: FDA-Public Use
  Company Number: PHHY2009JP17944

PATIENT
  Age: 62 Year
  Sex: Male
  Weight: 84.55 kg

DRUGS (30)
  1. STI571/CGP57148B T35717+TAB [Suspect]
     Indication: ACUTE LYMPHOCYTIC LEUKAEMIA
     Dosage: 400 MG/DAY
     Route: 048
     Dates: start: 20070403, end: 20070415
  2. STI571/CGP57148B T35717+TAB [Suspect]
     Dosage: 400 MG/DAY
     Route: 048
     Dates: start: 20070508, end: 20070521
  3. STI571/CGP57148B T35717+TAB [Suspect]
     Dosage: 400 MG/DAY
     Route: 048
     Dates: start: 20070619, end: 20070703
  4. STI571/CGP57148B T35717+TAB [Suspect]
     Dosage: 400 MG/DAY
     Route: 048
     Dates: start: 20070718, end: 20070730
  5. STI571/CGP57148B T35717+TAB [Suspect]
     Dosage: 400 MG/DAY
     Route: 048
     Dates: start: 20070822, end: 20070829
  6. STI571/CGP57148B T35717+TAB [Suspect]
     Dosage: 400 MG/DAY
     Route: 048
     Dates: start: 20070914, end: 20070925
  7. STI571/CGP57148B T35717+TAB [Suspect]
     Dosage: 400 MG/DAY
     Route: 048
     Dates: start: 20071005, end: 20071024
  8. STI571/CGP57148B T35717+TAB [Suspect]
     Dosage: 600 MG/DAY
     Route: 048
     Dates: start: 20071121
  9. STI571/CGP57148B T35717+TAB [Suspect]
     Dosage: 400 MG DAILY
     Route: 048
     Dates: start: 20090904, end: 20091020
  10. CYTARABINE [Suspect]
     Dosage: UNK
     Dates: start: 20070409, end: 20070411
  11. CYTARABINE [Suspect]
     Dosage: UNK
     Dates: start: 20070626, end: 20070628
  12. CYTARABINE [Suspect]
     Dosage: UNK
     Dates: start: 20070822, end: 20070824
  13. CYTARABINE [Suspect]
     Dosage: UNK
     Dates: start: 20071022, end: 20071024
  14. METHOTREXATE [Suspect]
     Dosage: UNK
     Dates: start: 20070409, end: 20070411
  15. METHOTREXATE [Suspect]
     Dosage: UNK
     Dates: start: 20070626, end: 20070628
  16. METHOTREXATE [Suspect]
     Dosage: UNK
     Dates: start: 20070822, end: 20070824
  17. METHOTREXATE [Suspect]
     Dosage: UNK
     Dates: start: 20071022, end: 20071024
  18. HYPER-CVAD [Concomitant]
     Dosage: UNK
     Dates: start: 20070314, end: 20070327
  19. HYPER-CVAD [Concomitant]
     Dosage: UNK
     Dates: start: 20070508, end: 20070521
  20. HYPER-CVAD [Concomitant]
     Dosage: UNK
     Dates: start: 20070723, end: 20070805
  21. HYPER-CVAD [Concomitant]
     Dosage: UNK
     Dates: start: 20070918, end: 20071001
  22. CYCLOPHOSPHAMIDE [Concomitant]
     Dosage: UNK
     Route: 041
     Dates: start: 20070314, end: 20071001
  23. VINCRISTINE SULFATE [Concomitant]
     Dosage: UNK
     Route: 041
     Dates: start: 20070314, end: 20071001
  24. DOXORUBICIN HYDROCHLORIDE [Concomitant]
     Dosage: UNK
     Route: 041
     Dates: start: 20070314, end: 20071001
  25. DEXAMETHASONE [Concomitant]
     Dosage: UNK
     Dates: start: 20070314, end: 20071001
  26. LEUKERIN [Concomitant]
     Dosage: 100 MG
     Route: 048
     Dates: start: 20071221
  27. LEUKERIN [Concomitant]
     Dosage: 100 MG
     Route: 048
  28. LEUKERIN [Concomitant]
     Dosage: 70 MG
     Route: 048
     Dates: end: 20080402
  29. COTRIM [Concomitant]
     Indication: PROPHYLAXIS
     Dosage: 1 DF
     Route: 048
     Dates: start: 20070314
  30. FLUCONAMERCK [Concomitant]
     Indication: PROPHYLAXIS
     Dosage: 1 DF
     Route: 048
     Dates: start: 20070314

REACTIONS (7)
  - BONE MARROW FAILURE [None]
  - ELECTROCARDIOGRAM QT PROLONGED [None]
  - HAEMOGLOBIN DECREASED [None]
  - LYMPHOCYTE COUNT DECREASED [None]
  - PALPITATIONS [None]
  - PLATELET COUNT DECREASED [None]
  - RED BLOOD CELL COUNT DECREASED [None]
